FAERS Safety Report 7636789-8 (Version None)
Quarter: 2011Q3

REPORT INFORMATION
  Report Type: 
  Country: None (occurrence: None)
  Receive Date: 20110719
  Receipt Date: 20110711
  Transmission Date: 20111222
  Serious: Yes (Other)
  Sender: FDA-Public Use
  Company Number: 1000022099

PATIENT
  Sex: Female

DRUGS (5)
  1. SYNTHROID [Suspect]
  2. HYDROCODONE BITARTRATE [Suspect]
  3. CELEXA [Suspect]
  4. METHADONE HCL [Suspect]
  5. ENBREL [Suspect]

REACTIONS (4)
  - HEADACHE [None]
  - BLADDER CANCER [None]
  - NIGHT SWEATS [None]
  - DRUG INEFFECTIVE [None]
